FAERS Safety Report 8050745-X (Version None)
Quarter: 2012Q1

REPORT INFORMATION
  Report Type: 
  Country: None (occurrence: None)
  Receive Date: 20120117
  Receipt Date: 20120117
  Transmission Date: 20120608
  Serious: Yes (Other)
  Sender: FDA-Public Use
  Company Number: None

PATIENT
  Age: 31 Year
  Sex: Female
  Weight: 99.79 kg

DRUGS (3)
  1. CYMBALTA [Suspect]
     Indication: DEPRESSION
     Dosage: 30MG
     Route: 048
     Dates: start: 20100101, end: 20120116
  2. ALLEGRA [Concomitant]
     Indication: MULTIPLE ALLERGIES
     Dosage: 180MG
     Route: 048
     Dates: start: 20100301, end: 20110831
  3. ALLEGRA [Concomitant]
     Indication: SINUSITIS
     Dosage: 180MG
     Route: 048
     Dates: start: 20100301, end: 20110831

REACTIONS (5)
  - SKIN EXFOLIATION [None]
  - BLOOD PRESSURE INCREASED [None]
  - CHEST PAIN [None]
  - RASH MACULAR [None]
  - HEART RATE INCREASED [None]
